FAERS Safety Report 24988100 (Version 4)
Quarter: 2025Q2

REPORT INFORMATION
  Report Type: Spontaneous
  Country: US (occurrence: US)
  Receive Date: 20250220
  Receipt Date: 20250507
  Transmission Date: 20250716
  Serious: No
  Sender: ROCHE
  Company Number: US-ROCHE-10000212951

PATIENT
  Age: 55 Year
  Sex: Female
  Weight: 58.97 kg

DRUGS (17)
  1. ACTEMRA [Suspect]
     Active Substance: TOCILIZUMAB
     Indication: Psoriatic arthropathy
     Route: 058
     Dates: start: 202402
  2. ACTEMRA [Suspect]
     Active Substance: TOCILIZUMAB
     Indication: Rheumatoid arthritis
     Route: 058
  3. ALBUTEROL SULFATE [Concomitant]
     Active Substance: ALBUTEROL SULFATE
  4. BROMFENAC [Concomitant]
     Active Substance: BROMFENAC
  5. FINASTERIDE [Concomitant]
     Active Substance: FINASTERIDE
  6. FOLIC ACID [Concomitant]
     Active Substance: FOLIC ACID
  7. LEVOTHYROXINE [Concomitant]
     Active Substance: LEVOTHYROXINE
  8. LIDOCAINE [Concomitant]
     Active Substance: LIDOCAINE
  9. ROSUVASTATIN [Concomitant]
     Active Substance: ROSUVASTATIN
  10. TOBRAMYCIN [Concomitant]
     Active Substance: TOBRAMYCIN
  11. VEVYE [Concomitant]
     Active Substance: CYCLOSPORINE
  12. MIEBO [Concomitant]
     Active Substance: PERFLUOROHEXYLOCTANE
  13. BUDESONIDE [Concomitant]
     Active Substance: BUDESONIDE
  14. CEQUA [Concomitant]
     Active Substance: CYCLOSPORINE
  15. EPINASTINE [Concomitant]
     Active Substance: EPINASTINE
  16. FINASTERIDE [Concomitant]
     Active Substance: FINASTERIDE
  17. FLUOROMETHOLONE [Concomitant]
     Active Substance: FLUOROMETHOLONE

REACTIONS (9)
  - Drug delivery system malfunction [Unknown]
  - Product preparation error [Unknown]
  - Spondyloarthropathy [Unknown]
  - Wrong technique in product usage process [Unknown]
  - Osteoarthritis [Unknown]
  - Polyarthritis [Unknown]
  - Dry eye [Unknown]
  - Eye irritation [Unknown]
  - Raynaud^s phenomenon [Unknown]

NARRATIVE: CASE EVENT DATE: 20250131
